FAERS Safety Report 7428537-1 (Version None)
Quarter: 2011Q2

REPORT INFORMATION
  Report Type: 
  Country: None (occurrence: None)
  Receive Date: 20110413
  Receipt Date: 20110331
  Transmission Date: 20111010
  Serious: No
  Sender: FDA-Public Use
  Company Number: 014903

PATIENT
  Age: 85 Year
  Sex: Male

DRUGS (3)
  1. ISODINE (POVIDONE-IODINE) [Concomitant]
  2. GATIFLOXACIN [Concomitant]
  3. MACUGEN [Suspect]
     Indication: MACULAR DEGENERATION
     Dosage: 0.3 MG, INTRAOCULAR
     Route: 031
     Dates: start: 20110301

REACTIONS (4)
  - CONJUNCTIVAL HYPERAEMIA [None]
  - EYE PAIN [None]
  - EYE DISCHARGE [None]
  - CORNEAL OEDEMA [None]
